FAERS Safety Report 15852362 (Version 1)
Quarter: 2019Q1

REPORT INFORMATION
  Report Type: Spontaneous
  Country: US (occurrence: US)
  Receive Date: 20190122
  Receipt Date: 20190122
  Transmission Date: 20190417
  Serious: Yes (Other)
  Sender: FDA-Public Use
  Company Number: US-ROCHE-2247141

PATIENT
  Age: 52 Year
  Sex: Male
  Weight: 89.44 kg

DRUGS (1)
  1. RITUXAN [Suspect]
     Active Substance: RITUXIMAB
     Indication: PRODUCT USED FOR UNKNOWN INDICATION
     Route: 065

REACTIONS (3)
  - Immune thrombocytopenic purpura [Not Recovered/Not Resolved]
  - Platelet count increased [Unknown]
  - Diabetes mellitus [Unknown]
